FAERS Safety Report 15823803 (Version 1)
Quarter: 2019Q1

REPORT INFORMATION
  Report Type: Spontaneous
  Country: US (occurrence: US)
  Receive Date: 20190114
  Receipt Date: 20190114
  Transmission Date: 20190417
  Serious: No
  Sender: FDA-Public Use
  Company Number: US-PFIZER INC-2018091679

PATIENT
  Age: 9 Month
  Sex: Male
  Weight: 61.23 kg

DRUGS (5)
  1. LEVOTHYROXINE. [Concomitant]
     Active Substance: LEVOTHYROXINE
     Indication: THYROID HORMONES DECREASED
     Dosage: 27.5 UG, 1X/DAY (1/2 OF A 55MCG TABLET ONCE PER DAY)
  2. GENOTROPIN MQ [Suspect]
     Active Substance: SOMATROPIN
     Indication: SEPTO-OPTIC DYSPLASIA
     Dosage: 1.2 MG, DAILY
     Route: 058
     Dates: start: 201801
  3. GENOTROPIN MQ [Suspect]
     Active Substance: SOMATROPIN
     Indication: GROWTH HORMONE DEFICIENCY
     Dosage: 1.2 MG, DAILY
     Route: 058
     Dates: start: 20090625, end: 201712
  4. DDAVP [Concomitant]
     Active Substance: DESMOPRESSIN ACETATE
     Indication: DIABETES INSIPIDUS
     Dosage: 1.6 MG, DAILY (0.5MG IN MORNING AND AFTERNOON, 0.6 MG AT 11PM)
  5. HYDROCORTISONE. [Concomitant]
     Active Substance: HYDROCORTISONE
     Indication: HORMONE THERAPY
     Dosage: 2.5 MG, 2X/DAY (2.5 MG ONE TABLET IN MORNING AND ONE TABLET AT 7PM)

REACTIONS (4)
  - Insulin-like growth factor decreased [Unknown]
  - Blood osmolarity increased [Unknown]
  - Insulin-like growth factor increased [Unknown]
  - Thyroxine free increased [Unknown]

NARRATIVE: CASE EVENT DATE: 20090818
